FAERS Safety Report 5928794-4 (Version None)
Quarter: 2008Q4

REPORT INFORMATION
  Report Type: 
  Country: None (occurrence: None)
  Receive Date: 20081020
  Receipt Date: 20081009
  Transmission Date: 20090506
  Serious: No
  Sender: FDA-Public Use
  Company Number: 000253

PATIENT
  Age: 93 Year
  Sex: Male
  Weight: 46 kg

DRUGS (12)
  1. PLETAL [Suspect]
     Indication: ARTERIOSCLEROSIS OBLITERANS
     Dosage: 50 MG, BID; ORAL
     Route: 048
     Dates: start: 20080112, end: 20080228
  2. CALCIUM ANTAGONIST (CALCIUM ANTAGONIST) [Concomitant]
  3. ASPIRIN [Concomitant]
  4. OMEPRAZOLE (OMEPRAZOLE) TABLET [Concomitant]
  5. KETOBUN (ALLUPURINOL) [Concomitant]
  6. SALUMOSIN (NICERGOLINE) TABLET [Concomitant]
  7. METAHISLON (BETASHISTINE MESILATE) TABLET [Concomitant]
  8. CLARITHROMYCIN (CLARITHROMYCIN) TABLET [Concomitant]
  9. SG (PYRAZOLONE ANTI-PYRETICS, ANALEGESICS, ANTI-INFLAMMATORIES C) [Concomitant]
  10. FRENADOLS (ISOSORBIDE DINITRATE) TAPE [Concomitant]
  11. METILGINE D (MIDODRINE HYDROCHLORIDE) TABLET [Concomitant]
  12. CIGULANCOAT (NICORANDIL) [Concomitant]

REACTIONS (1)
  - OEDEMA [None]
